FAERS Safety Report 12429414 (Version 1)
Quarter: 2016Q2

REPORT INFORMATION
  Report Type: Other
  Country: CA (occurrence: CA)
  Receive Date: 20160602
  Receipt Date: 20160602
  Transmission Date: 20160815
  Serious: Yes (Other)
  Sender: FDA-Public Use
  Company Number: CA-APOTEX-2016AP008747

PATIENT
  Age: 78 Year
  Sex: Male

DRUGS (1)
  1. APO-LEVOCARB [Suspect]
     Active Substance: CARBIDOPA\LEVODOPA
     Indication: PARKINSON^S DISEASE
     Dosage: 2 DF, BID
     Route: 048

REACTIONS (3)
  - Parkinson^s disease [Unknown]
  - Drug level decreased [Unknown]
  - Product substitution issue [Unknown]
